FAERS Safety Report 9993439 (Version 1)
Quarter: 2014Q1

REPORT INFORMATION
  Report Type: Spontaneous
  Country: IT (occurrence: IT)
  Receive Date: 20140310
  Receipt Date: 20140310
  Transmission Date: 20141002
  Serious: Yes (Hospitalization)
  Sender: FDA-Public Use
  Company Number: IT-ABBVIE-14P-083-1210706-00

PATIENT
  Age: 41 Year
  Sex: Female

DRUGS (4)
  1. MACLADIN [Suspect]
     Indication: NASOPHARYNGITIS
     Route: 048
     Dates: start: 20140123, end: 20140125
  2. ZIMOX [Suspect]
     Indication: PAROTID GLAND ENLARGEMENT
     Route: 048
     Dates: start: 20140117, end: 20140123
  3. AUGMENTIN [Suspect]
     Indication: PAROTID GLAND ENLARGEMENT
     Dosage: FORM STRENGHT: 875MG/125MG
     Route: 048
     Dates: start: 20140107, end: 20140117
  4. LANSOPRAZOLO [Concomitant]
     Indication: PRODUCT USED FOR UNKNOWN INDICATION

REACTIONS (3)
  - Adverse drug reaction [Recovering/Resolving]
  - Erythema [Recovering/Resolving]
  - Rash generalised [Recovering/Resolving]
